FAERS Safety Report 11270403 (Version 4)
Quarter: 2017Q2

REPORT INFORMATION
  Report Type: Report from Study
  Country: JP (occurrence: JP)
  Receive Date: 20150714
  Receipt Date: 20170510
  Transmission Date: 20170829
  Serious: Yes (Death, Hospitalization, Other)
  Sender: FDA-Public Use
  Company Number: JP-INCYTE CORPORATION-2015IN003225

PATIENT
  Age: 71 Year
  Sex: Female
  Weight: 50 kg

DRUGS (1)
  1. JAKAVI [Suspect]
     Active Substance: RUXOLITINIB
     Indication: PRIMARY MYELOFIBROSIS
     Dosage: 7.5 MG, BID
     Route: 048
     Dates: start: 20141009, end: 20150626

REACTIONS (6)
  - Cardiac failure [Fatal]
  - Pneumonia [Fatal]
  - Primary myelofibrosis [Fatal]
  - Sepsis [Fatal]
  - Disseminated intravascular coagulation [Unknown]
  - Blood pressure increased [Unknown]

NARRATIVE: CASE EVENT DATE: 20150626
